FAERS Safety Report 24117314 (Version 1)
Quarter: 2024Q3

REPORT INFORMATION
  Report Type: Spontaneous
  Country: US (occurrence: US)
  Receive Date: 20240722
  Receipt Date: 20240722
  Transmission Date: 20241016
  Serious: No
  Sender: BRISTOL MYERS SQUIBB
  Company Number: US-BRISTOL-MYERS SQUIBB COMPANY-2024-115325

PATIENT
  Age: 50 Year
  Sex: Female
  Weight: 78.02 kg

DRUGS (1)
  1. REVLIMID [Suspect]
     Active Substance: LENALIDOMIDE
     Indication: Plasma cell myeloma
     Dosage: FREQUENCY: 2WKSON/1WKOFF
     Route: 048
     Dates: start: 20240601

REACTIONS (4)
  - Defaecation urgency [Unknown]
  - Abdominal pain [Unknown]
  - Diarrhoea [Unknown]
  - Off label use [Unknown]
